FAERS Safety Report 24269499 (Version 1)
Quarter: 2024Q3

REPORT INFORMATION
  Report Type: Spontaneous
  Country: US (occurrence: US)
  Receive Date: 20240830
  Receipt Date: 20240830
  Transmission Date: 20241016
  Serious: Yes (Other)
  Sender: MOBIUS THERAPEUTICS
  Company Number: US-MOBIUS THERAPEUTICS-2024MB000004

PATIENT

DRUGS (1)
  1. MITOSOL [Suspect]
     Active Substance: ISOPROPYL ALCOHOL\MITOMYCIN
     Indication: Dacryostenosis acquired
     Dosage: UNK
     Route: 065
     Dates: start: 20240709, end: 20240709

REACTIONS (3)
  - Soft tissue necrosis [Recovering/Resolving]
  - Eye swelling [Recovering/Resolving]
  - Eye irritation [Recovering/Resolving]

NARRATIVE: CASE EVENT DATE: 20240701
